FAERS Safety Report 19393989 (Version 2)
Quarter: 2021Q2

REPORT INFORMATION
  Report Type: Spontaneous
  Country: JP (occurrence: JP)
  Receive Date: 20210609
  Receipt Date: 20210615
  Transmission Date: 20210717
  Serious: Yes (Other)
  Sender: FDA-Public Use
  Company Number: JP-GLAXOSMITHKLINE-JP2021121233

PATIENT
  Age: 82 Year
  Sex: Male

DRUGS (1)
  1. REQUIP [Suspect]
     Active Substance: ROPINIROLE HYDROCHLORIDE
     Dosage: 6 MG, QD

REACTIONS (2)
  - Parkinson^s disease [Unknown]
  - Dysphagia [Not Recovered/Not Resolved]
